FAERS Safety Report 4409432-9 (Version None)
Quarter: 2004Q3

REPORT INFORMATION
  Report Type: 
  Country: None (occurrence: None)
  Receive Date: 20040723
  Receipt Date: 20040715
  Transmission Date: 20050211
  Serious: No
  Sender: FDA-Public Use
  Company Number: 2004UW14624

PATIENT
  Age: 55 Year
  Sex: Female

DRUGS (6)
  1. NEXIUM [Suspect]
     Indication: DIARRHOEA
     Dosage: 40 MG DAILY PO
     Route: 048
     Dates: start: 20040617
  2. NEXIUM [Suspect]
     Indication: HERNIA
     Dosage: 40 MG DAILY PO
     Route: 048
     Dates: start: 20040617
  3. CRESTOR [Suspect]
     Dates: start: 20030101
  4. HYZAAR [Concomitant]
  5. SERC [Concomitant]
  6. ANTIBIOTIC [Concomitant]

REACTIONS (4)
  - DIARRHOEA [None]
  - HERNIA [None]
  - MENSTRUAL DISORDER [None]
  - POSTMENOPAUSAL HAEMORRHAGE [None]
